FAERS Safety Report 20018296 (Version 2)
Quarter: 2022Q1

REPORT INFORMATION
  Report Type: Report from Study
  Country: EG (occurrence: EG)
  Receive Date: 20211101
  Receipt Date: 20220221
  Transmission Date: 20220423
  Serious: Yes (Other)
  Sender: FDA-Public Use
  Company Number: EG-NOVARTISPH-NVSC2021EG241460

PATIENT
  Age: 35 Year
  Sex: Female

DRUGS (7)
  1. GILENYA [Suspect]
     Active Substance: FINGOLIMOD HYDROCHLORIDE
     Indication: Multiple sclerosis
     Dosage: 0.5 MG, QD
     Route: 048
     Dates: start: 202104
  2. GAPTIN [Concomitant]
     Indication: Hypoaesthesia
     Dosage: 400 MG, BID
     Route: 048
     Dates: start: 202102
  3. APIFORTYL [Concomitant]
     Indication: Supplementation therapy
     Dosage: UNK UNK, QD
     Route: 048
     Dates: start: 202104
  4. OMEGA 3 [Concomitant]
     Active Substance: CAPSAICIN
     Indication: Supplementation therapy
     Dosage: UNK, QD
     Route: 048
     Dates: start: 202104
  5. FOLIC ACID [Concomitant]
     Active Substance: FOLIC ACID
     Indication: Supplementation therapy
     Dosage: UNK, QD
     Route: 048
     Dates: start: 202104, end: 20211003
  6. LUCIDRIL [Concomitant]
     Indication: Balance disorder
     Dosage: 500 MG, BID
     Route: 048
     Dates: start: 202108
  7. VERSERC [Concomitant]
     Indication: Balance disorder
     Dosage: 16 MG, BID
     Route: 048
     Dates: start: 202108

REACTIONS (8)
  - Chest pain [Recovered/Resolved]
  - COVID-19 [Recovered/Resolved]
  - Nasal congestion [Recovered/Resolved]
  - Oropharyngeal pain [Recovered/Resolved]
  - Hepatic enzyme increased [Recovering/Resolving]
  - Tremor [Not Recovered/Not Resolved]
  - Hypoaesthesia [Not Recovered/Not Resolved]
  - Concomitant disease aggravated [Not Recovered/Not Resolved]

NARRATIVE: CASE EVENT DATE: 20210401
